FAERS Safety Report 13874158 (Version 5)
Quarter: 2018Q4

REPORT INFORMATION
  Report Type: Spontaneous
  Country: US (occurrence: US)
  Receive Date: 20170816
  Receipt Date: 20181115
  Transmission Date: 20190204
  Serious: Yes (Hospitalization, Other)
  Sender: FDA-Public Use
  Company Number: US-ACTELION-A-NJ2017-157996

PATIENT
  Age: 77 Year
  Sex: Female

DRUGS (15)
  1. AMLODIPINE BESYLATE. [Concomitant]
     Active Substance: AMLODIPINE BESYLATE
  2. COLACE [Concomitant]
     Active Substance: DOCUSATE SODIUM
  3. SYMBICORT [Concomitant]
     Active Substance: BUDESONIDE\FORMOTEROL FUMARATE DIHYDRATE
  4. ASPIRIN. [Concomitant]
     Active Substance: ASPIRIN
  5. MYLANTA [Concomitant]
     Active Substance: ALUMINUM HYDROXIDE\DIMETHICONE\MAGNESIUM HYDROXIDE
  6. MAGNESIUM [Concomitant]
     Active Substance: MAGNESIUM
  7. OMEPRAZOLE. [Concomitant]
     Active Substance: OMEPRAZOLE
  8. PRAVASTATIN SODIUM. [Concomitant]
     Active Substance: PRAVASTATIN SODIUM
  9. OPSUMIT [Suspect]
     Active Substance: MACITENTAN
     Indication: PULMONARY ARTERIAL HYPERTENSION
     Dosage: 10 MG, UNK
     Route: 048
     Dates: start: 20160829
  10. KLOR-CON [Concomitant]
     Active Substance: POTASSIUM CHLORIDE
  11. ALLOPURINOL. [Concomitant]
     Active Substance: ALLOPURINOL
  12. MUCINEX [Concomitant]
     Active Substance: GUAIFENESIN
  13. TRAMADOL HCL [Concomitant]
     Active Substance: TRAMADOL HYDROCHLORIDE
  14. ADAZIN [Concomitant]
     Active Substance: BENZOCAINE\CAPSAICIN\LIDOCAINE\METHYL SALICYLATE
  15. VITAMIN D [Concomitant]
     Active Substance: CHOLECALCIFEROL

REACTIONS (12)
  - Productive cough [Recovered/Resolved]
  - Hypokalaemia [Unknown]
  - Chronic obstructive pulmonary disease [Recovered/Resolved]
  - Swelling [Recovered/Resolved]
  - Lung infiltration [Recovered/Resolved]
  - Cardiac failure congestive [Unknown]
  - Deafness [Unknown]
  - Pneumonia [Recovered/Resolved]
  - Atelectasis [Recovered/Resolved]
  - Acute sinusitis [Unknown]
  - Fluid retention [Recovered/Resolved]
  - Dyspnoea [Recovered/Resolved]

NARRATIVE: CASE EVENT DATE: 20161023
